FAERS Safety Report 9484178 (Version 2)
Quarter: 2013Q3

REPORT INFORMATION
  Report Type: Spontaneous
  Country: CA (occurrence: CA)
  Receive Date: 20130828
  Receipt Date: 20130828
  Transmission Date: 20140515
  Serious: Yes (Hospitalization, Other)
  Sender: FDA-Public Use
  Company Number: CA-AMGEN-KDL298417

PATIENT
  Age: 58 Year
  Sex: Female
  Weight: 103.5 kg

DRUGS (13)
  1. ENBREL [Suspect]
     Indication: RHEUMATOID ARTHRITIS
     Dosage: 50 MG, QWK
     Route: 065
     Dates: start: 20080618
  2. ENBREL [Suspect]
     Dosage: 50 MG, QWK
     Route: 065
     Dates: start: 20080618
  3. METHOTREXATE [Concomitant]
     Dosage: UNK UNK, UNK
  4. CELECOXIB [Concomitant]
     Dosage: UNK UNK, UNK
  5. PANADEINE CO [Concomitant]
     Dosage: UNK UNK, UNK
  6. UNSPECIFIED MEDICATION [Concomitant]
     Dosage: UNK UNK, UNK
  7. THYROXINE [Concomitant]
     Dosage: UNK UNK, UNK
  8. FOLIC ACID [Concomitant]
     Dosage: UNK UNK, UNK
  9. NORTRIPTYLINE [Concomitant]
     Dosage: UNK UNK, UNK
  10. VENLAFAXINE HCL [Concomitant]
  11. LEVOTHYROXINE SODIUM [Concomitant]
  12. OMEPRAZOLE [Concomitant]
  13. AMITRIPTYLINE [Concomitant]

REACTIONS (13)
  - Pulmonary function test decreased [Not Recovered/Not Resolved]
  - Chest discomfort [Unknown]
  - Dyspnoea [Not Recovered/Not Resolved]
  - Pneumonia [Unknown]
  - Gastroenteritis [Unknown]
  - Injection site bruising [Unknown]
  - Headache [Unknown]
  - Injection site pain [Not Recovered/Not Resolved]
  - Injection site swelling [Not Recovered/Not Resolved]
  - Injection site erythema [Not Recovered/Not Resolved]
  - Injection site pruritus [Not Recovered/Not Resolved]
  - Nausea [Recovering/Resolving]
  - Weight increased [Unknown]
